FAERS Safety Report 12263047 (Version 1)
Quarter: 2016Q2

REPORT INFORMATION
  Report Type: Spontaneous
  Country: US (occurrence: US)
  Receive Date: 20160413
  Receipt Date: 20160413
  Transmission Date: 20160815
  Serious: No
  Sender: FDA-Public Use
  Company Number: US-PFIZER INC-2016208406

PATIENT
  Age: 47 Year
  Sex: Female

DRUGS (9)
  1. GABAPENTIN. [Suspect]
     Active Substance: GABAPENTIN
     Dosage: UNK
  2. DICLOFENAC SODIUM. [Suspect]
     Active Substance: DICLOFENAC SODIUM
  3. CYCLOBENZAPRINE HCL [Suspect]
     Active Substance: CYCLOBENZAPRINE HYDROCHLORIDE
  4. CYMBALTA [Suspect]
     Active Substance: DULOXETINE HYDROCHLORIDE
  5. RELAFEN [Suspect]
     Active Substance: NABUMETONE
  6. TIZANIDINE HCL [Suspect]
     Active Substance: TIZANIDINE HYDROCHLORIDE
  7. MORPHINE SULFATE. [Suspect]
     Active Substance: MORPHINE SULFATE
     Dosage: UNK
  8. FLEXERIL [Suspect]
     Active Substance: CYCLOBENZAPRINE HYDROCHLORIDE
  9. VOLTAREN [Suspect]
     Active Substance: DICLOFENAC SODIUM

REACTIONS (1)
  - Drug hypersensitivity [Not Recovered/Not Resolved]
